FAERS Safety Report 23697356 (Version 4)
Quarter: 2024Q2

REPORT INFORMATION
  Report Type: Report from Study
  Country: DE (occurrence: DE)
  Receive Date: 20240402
  Receipt Date: 20240426
  Transmission Date: 20240715
  Serious: Yes (Hospitalization, Other)
  Sender: FDA-Public Use
  Company Number: DE-ABBVIE-5698280

PATIENT
  Age: 65 Year
  Sex: Male

DRUGS (2)
  1. CARBIDOPA\LEVODOPA [Suspect]
     Active Substance: CARBIDOPA\LEVODOPA
     Indication: Parkinson^s disease
     Dosage: MD: 4.0ML, CRD: 5.3ML/H, CRN: 5.0ML/H, ED 2.0ML.
     Route: 050
     Dates: start: 201906
  2. CARBIDOPA\LEVODOPA [Suspect]
     Active Substance: CARBIDOPA\LEVODOPA

REACTIONS (7)
  - Intestinal obstruction [Recovering/Resolving]
  - Abdominal rigidity [Not Recovered/Not Resolved]
  - Device occlusion [Unknown]
  - Abscess [Unknown]
  - Device issue [Not Recovered/Not Resolved]
  - Incorrect route of product administration [Not Recovered/Not Resolved]
  - Constipation [Unknown]

NARRATIVE: CASE EVENT DATE: 20230401
